FAERS Safety Report 14917768 (Version 1)
Quarter: 2018Q2

REPORT INFORMATION
  Report Type: Spontaneous
  Country: US (occurrence: US)
  Receive Date: 20180521
  Receipt Date: 20180521
  Transmission Date: 20180711
  Serious: No
  Sender: FDA-Public Use
  Company Number: US-009507513-1805USA007550

PATIENT
  Sex: Female

DRUGS (2)
  1. AMPYRA [Suspect]
     Active Substance: DALFAMPRIDINE
     Route: 048
  2. PRINIVIL [Suspect]
     Active Substance: LISINOPRIL
     Route: 048

REACTIONS (1)
  - Drug hypersensitivity [Unknown]
